FAERS Safety Report 20167491 (Version 3)
Quarter: 2022Q1

REPORT INFORMATION
  Report Type: Report from Study
  Country: FR (occurrence: FR)
  Receive Date: 20211209
  Receipt Date: 20220104
  Transmission Date: 20220423
  Serious: Yes (Hospitalization, Other)
  Sender: FDA-Public Use
  Company Number: FR-BRISTOL-MYERS SQUIBB COMPANY-BMS-2021-131361

PATIENT
  Age: 70 Year
  Sex: Male
  Weight: 68 kg

DRUGS (2)
  1. NIVOLUMAB [Suspect]
     Active Substance: NIVOLUMAB
     Indication: Thymoma malignant
     Dosage: 240 MILLIGRAM, Q2WK
     Route: 042
     Dates: start: 20211020, end: 20211117
  2. IPILIMUMAB [Suspect]
     Active Substance: IPILIMUMAB
     Indication: Thymoma malignant
     Dosage: 69 MILLIGRAM, Q6WK (1 MG/KG)
     Route: 042
     Dates: start: 20211020, end: 20211020

REACTIONS (3)
  - Guillain-Barre syndrome [Recovering/Resolving]
  - Neuropathy peripheral [Recovering/Resolving]
  - Pain in extremity [Recovering/Resolving]

NARRATIVE: CASE EVENT DATE: 20211124
